FAERS Safety Report 7628016-2 (Version None)
Quarter: 2011Q3

REPORT INFORMATION
  Report Type: 
  Country: None (occurrence: None)
  Receive Date: 20110722
  Receipt Date: 20110713
  Transmission Date: 20111222
  Serious: No
  Sender: FDA-Public Use
  Company Number: US-BIOGENIDEC-2011BI003896

PATIENT
  Sex: Male

DRUGS (2)
  1. TYSABRI [Suspect]
     Indication: MULTIPLE SCLEROSIS
     Route: 042
     Dates: start: 20100802
  2. TYSABRI [Suspect]
     Route: 042
     Dates: start: 20091008, end: 20100128

REACTIONS (14)
  - MULTIPLE SCLEROSIS [None]
  - COORDINATION ABNORMAL [None]
  - EXTREMITY CONTRACTURE [None]
  - PAIN IN EXTREMITY [None]
  - MOBILITY DECREASED [None]
  - MUSCLE SPASMS [None]
  - HYPOAESTHESIA [None]
  - MUSCULOSKELETAL DISORDER [None]
  - LIMB INJURY [None]
  - NIGHT BLINDNESS [None]
  - DRUG INEFFECTIVE [None]
  - BLINDNESS [None]
  - DIARRHOEA [None]
  - MUSCULAR WEAKNESS [None]
